FAERS Safety Report 5576925-0 (Version None)
Quarter: 2007Q4

REPORT INFORMATION
  Report Type: 
  Country: None (occurrence: None)
  Receive Date: 20071228
  Receipt Date: 20071220
  Transmission Date: 20080405
  Serious: Yes (Hospitalization)
  Sender: FDA-Public Use
  Company Number: BR-ABBOTT-07P-020-0431173-00

PATIENT
  Sex: Female
  Weight: 61 kg

DRUGS (5)
  1. HUMIRA [Suspect]
     Indication: RHEUMATOID ARTHRITIS
     Route: 058
     Dates: start: 20050501
  2. MAGISTRAL FORMULA WITH CORTICOID AND ANTI-INFLAMMATORY [Concomitant]
     Indication: RHEUMATOID ARTHRITIS
  3. AMLODIPINE BESYLATE [Concomitant]
     Indication: HYPERTENSION
  4. DIUPRES [Concomitant]
     Indication: HYPERTENSION
  5. SERTRALINE [Concomitant]
     Indication: HYPERTENSION

REACTIONS (4)
  - BONE SCAN ABNORMAL [None]
  - OEDEMA PERIPHERAL [None]
  - PAIN [None]
  - PYREXIA [None]
